FAERS Safety Report 22185366 (Version 1)
Quarter: 2023Q2

REPORT INFORMATION
  Report Type: Spontaneous
  Country: US (occurrence: None)
  Receive Date: 20230406
  Receipt Date: 20230406
  Transmission Date: 20230722
  Serious: Yes (Life-Threatening, Other)
  Sender: FDA-Public Use
  Company Number: None

PATIENT
  Age: 74 Year
  Sex: Female
  Weight: 41.4 kg

DRUGS (4)
  1. PAXLOVID [Suspect]
     Active Substance: NIRMATRELVIR\RITONAVIR
     Indication: COVID-19
     Route: 048
     Dates: start: 20230405, end: 20230405
  2. Prednisone 20mg/d [Concomitant]
  3. VITAMINS [Concomitant]
     Active Substance: VITAMINS
  4. IRON [Concomitant]
     Active Substance: IRON

REACTIONS (9)
  - SARS-CoV-2 test positive [None]
  - Pneumonia [None]
  - Malaise [None]
  - Muscular weakness [None]
  - Tremor [None]
  - Dizziness [None]
  - Disorientation [None]
  - Heart rate increased [None]
  - Syncope [None]

NARRATIVE: CASE EVENT DATE: 20230405
